FAERS Safety Report 9780808 (Version 1)
Quarter: 2013Q4

REPORT INFORMATION
  Report Type: Report from Study
  Country: AR (occurrence: AR)
  Receive Date: 20131224
  Receipt Date: 20131224
  Transmission Date: 20140711
  Serious: Yes (Hospitalization, Other)
  Sender: FDA-Public Use
  Company Number: PHHY2013AR150185

PATIENT
  Age: 73 Year
  Sex: Female

DRUGS (1)
  1. DIOVAN D [Suspect]
     Indication: HYPERTENSION
     Dosage: 1 DF, (160 MG VALSA/12.5 MG HCT) DAILY
     Route: 048
     Dates: start: 200410

REACTIONS (1)
  - Haemorrhage [Recovering/Resolving]
